FAERS Safety Report 20333796 (Version 1)
Quarter: 2022Q1

REPORT INFORMATION
  Report Type: Spontaneous
  Country: None (occurrence: GB)
  Receive Date: 20220113
  Receipt Date: 20220113
  Transmission Date: 20220423
  Serious: Yes (Hospitalization, Other)
  Sender: FDA-Public Use
  Company Number: GB-Breckenridge Pharmaceutical, Inc.-2123916

PATIENT
  Age: 73 Year
  Sex: Female

DRUGS (4)
  1. OMEPRAZOLE [Suspect]
     Active Substance: OMEPRAZOLE
     Indication: Gastrooesophageal reflux disease
     Route: 048
     Dates: start: 2010, end: 202110
  2. CANDESARTAN [Concomitant]
     Active Substance: CANDESARTAN
  3. AMLODIPINE [Concomitant]
     Active Substance: AMLODIPINE BESYLATE
  4. LOPERAMIDE HCL ANTI-DIARRHEAL [Concomitant]
     Active Substance: LOPERAMIDE HYDROCHLORIDE

REACTIONS (20)
  - Anaemia [Not Recovered/Not Resolved]
  - Muscle spasms [Unknown]
  - Joint swelling [Unknown]
  - Gait disturbance [Not Recovered/Not Resolved]
  - Renal disorder [Unknown]
  - Feeling abnormal [Not Recovered/Not Resolved]
  - Back pain [Recovering/Resolving]
  - Urinary tract disorder [Unknown]
  - Urethral prolapse [Unknown]
  - Chills [Unknown]
  - Dysarthria [Unknown]
  - Fatigue [Unknown]
  - Pain in extremity [Unknown]
  - Impaired quality of life [Unknown]
  - Pollakiuria [Unknown]
  - Amnesia [Unknown]
  - Diarrhoea [Recovered/Resolved]
  - Abdominal pain [Unknown]
  - Pyrexia [Unknown]
  - Arthralgia [Unknown]
